FAERS Safety Report 6057912-5 (Version None)
Quarter: 2009Q1

REPORT INFORMATION
  Report Type: 
  Country: None (occurrence: None)
  Receive Date: 20090129
  Receipt Date: 20090122
  Transmission Date: 20090719
  Serious: Yes (Hospitalization)
  Sender: FDA-Public Use
  Company Number: GB-MERCK-0901GBR00017

PATIENT
  Age: 43 Year
  Sex: Male

DRUGS (4)
  1. COZAAR [Suspect]
     Route: 048
     Dates: start: 20010101
  2. BISOPROLOL [Concomitant]
     Route: 065
  3. FUROSEMIDE [Concomitant]
     Route: 065
  4. PREDNISOLONE [Concomitant]
     Route: 065

REACTIONS (4)
  - ABDOMINAL PAIN [None]
  - BLOOD CREATININE INCREASED [None]
  - NEPHROTIC SYNDROME [None]
  - SMALL BOWEL ANGIOEDEMA [None]
